FAERS Safety Report 4716526-7 (Version None)
Quarter: 2005Q3

REPORT INFORMATION
  Report Type: 
  Country: None (occurrence: None)
  Receive Date: 20050714
  Receipt Date: 20050630
  Transmission Date: 20060218
  Serious: Yes (Hospitalization)
  Sender: FDA-Public Use
  Company Number: 200505561

PATIENT
  Age: 77 Year
  Sex: Female

DRUGS (4)
  1. ALESION (EPINASTINE) [Suspect]
     Indication: ASTHMA
     Dosage: 20 MG DAILY PO
     Route: 048
     Dates: start: 20050225, end: 20050512
  2. ACCOLATE [Suspect]
     Indication: ASTHMA
     Dosage: 40 MG DAILY PO
     Route: 048
     Dates: start: 20050225, end: 20050512
  3. GASTER [Suspect]
     Dosage: 20 MG DAILY PO
     Route: 048
     Dates: start: 20050225, end: 20050512
  4. DIOVAN [Concomitant]

REACTIONS (1)
  - HEPATITIS [None]
